FAERS Safety Report 18047550 (Version 2)
Quarter: 2020Q4

REPORT INFORMATION
  Report Type: Report from Study
  Country: JP (occurrence: JP)
  Receive Date: 20200721
  Receipt Date: 20201123
  Transmission Date: 20210113
  Serious: Yes (Death, Other)
  Sender: FDA-Public Use
  Company Number: JP-009507513-2007JPN001554J

PATIENT
  Age: 28 Year
  Sex: Male
  Weight: 74 kg

DRUGS (16)
  1. PROGRAF [Concomitant]
     Active Substance: TACROLIMUS
     Indication: PROPHYLAXIS
     Dosage: 0.55-0.7
     Route: 051
     Dates: start: 20181031, end: 20181211
  2. OMEPRAZOLE. [Concomitant]
     Active Substance: OMEPRAZOLE
     Dosage: 10 MILLIGRAM
     Route: 041
     Dates: start: 20181122, end: 20181122
  3. ACICLOVIR [Concomitant]
     Active Substance: ACYCLOVIR
     Indication: PROPHYLAXIS
     Dosage: 250 MG
     Route: 041
     Dates: start: 20181107, end: 20181211
  4. RABEPRAZOLE NA [Concomitant]
     Active Substance: RABEPRAZOLE SODIUM
     Indication: PROPHYLAXIS
     Dosage: 10 MILLIGRAM, AFTER MORNING
     Route: 048
     Dates: start: 20181025, end: 20181114
  5. FENTANYL. [Concomitant]
     Active Substance: FENTANYL
     Dosage: 200-500 MICRO-G
     Route: 041
     Dates: start: 20181105, end: 20181110
  6. METHOTREXATE. [Concomitant]
     Active Substance: METHOTREXATE
     Indication: PROPHYLAXIS
     Dosage: 0.19
     Route: 051
     Dates: start: 20181031, end: 20181105
  7. ROPION [Concomitant]
     Active Substance: FLURBIPROFEN AXETIL
     Dosage: 50 MG
     Route: 041
     Dates: start: 20181107, end: 20181107
  8. LOPERAMIDE HYDROCHLORIDE. [Concomitant]
     Active Substance: LOPERAMIDE HYDROCHLORIDE
     Dosage: 1 MILLIGRAM, TID, AFTER MEALS
     Route: 048
     Dates: start: 20181102, end: 20181108
  9. FENTANYL. [Concomitant]
     Active Substance: FENTANYL
     Dosage: 500-3,000 MICRO-G
     Route: 041
     Dates: start: 20181106, end: 20181124
  10. ACICLOVIR [Concomitant]
     Active Substance: ACYCLOVIR
     Indication: PROPHYLAXIS
     Dosage: 1000 MILLIGRAM, AFTER EACH MEAL, AT 15:00, BEFORE BED
     Route: 048
     Dates: start: 20181025, end: 20181114
  11. ROPION [Concomitant]
     Active Substance: FLURBIPROFEN AXETIL
     Dosage: 25 MG
     Route: 041
     Dates: start: 20181106, end: 20181106
  12. LETERMOVIR [Suspect]
     Active Substance: LETERMOVIR
     Indication: ANTIVIRAL PROPHYLAXIS
     Dosage: 480 MILLIGRAM, QD
     Route: 048
     Dates: start: 20181031, end: 20181106
  13. SOLU-CORTEF [Concomitant]
     Active Substance: HYDROCORTISONE SODIUM SUCCINATE
     Dosage: 100-200 MG
     Route: 041
     Dates: start: 20181106, end: 20191113
  14. PREVYMIS [Suspect]
     Active Substance: LETERMOVIR
     Indication: ANTIVIRAL PROPHYLAXIS
     Dosage: 480 MILLIGRAM, QD
     Route: 041
     Dates: start: 20181107, end: 20181212
  15. CORTRIL [Concomitant]
     Active Substance: HYDROCORTISONE
     Dosage: 20 MILLIGRAM, AFTER MORNING
     Route: 048
     Dates: start: 20181030, end: 20181114
  16. OMEPRAZOLE. [Concomitant]
     Active Substance: OMEPRAZOLE
     Indication: PROPHYLAXIS
     Dosage: 20 MILLIGRAM
     Route: 041
     Dates: start: 20181107, end: 20181121

REACTIONS (2)
  - Hepatic vein occlusion [Fatal]
  - Pneumonia [Fatal]

NARRATIVE: CASE EVENT DATE: 20181113
